FAERS Safety Report 5691605-9 (Version None)
Quarter: 2008Q2

REPORT INFORMATION
  Report Type: 
  Country: None (occurrence: None)
  Receive Date: 20080402
  Receipt Date: 20050506
  Transmission Date: 20081010
  Serious: Yes (Death)
  Sender: FDA-Public Use
  Company Number: US-ROCHE-404302

PATIENT
  Age: 45 Year
  Sex: Male

DRUGS (2)
  1. PEGASYS [Suspect]
     Dosage: ROUTE: ^INJ.^
     Route: 050
     Dates: start: 20050201, end: 20050322
  2. COPEGUS [Suspect]
     Route: 048
     Dates: start: 20050201, end: 20050322

REACTIONS (2)
  - CHRONIC HEPATIC FAILURE [None]
  - DISEASE PROGRESSION [None]
